FAERS Safety Report 19315054 (Version 2)
Quarter: 2021Q2

REPORT INFORMATION
  Report Type: Spontaneous
  Country: GB (occurrence: GB)
  Receive Date: 20210527
  Receipt Date: 20210625
  Transmission Date: 20210717
  Serious: Yes (Hospitalization, Other)
  Sender: FDA-Public Use
  Company Number: GB-GLAXOSMITHKLINE-GB2021113437

PATIENT
  Age: 44 Year
  Sex: Female
  Weight: 75 kg

DRUGS (10)
  1. PFIZER?BIONTECH COVID?19 VACCINE [Suspect]
     Active Substance: TOZINAMERAN
     Indication: PRODUCT USED FOR UNKNOWN INDICATION
     Dosage: UNK(DOSE 1)
     Route: 065
     Dates: start: 20210210, end: 20210210
  2. AVAMYS [Concomitant]
     Active Substance: FLUTICASONE FUROATE
     Indication: HYPERSENSITIVITY
     Dosage: UNK
     Route: 065
     Dates: start: 20100101
  3. SOOLANTRA [Concomitant]
     Active Substance: IVERMECTIN
     Indication: ROSACEA
     Dosage: UNK
     Route: 065
     Dates: start: 20190101
  4. SALAMOL [Concomitant]
     Active Substance: ALBUTEROL
     Indication: ASTHMA
     Dosage: UNK
     Route: 065
     Dates: start: 19950101
  5. BENADRYL ALLERGY RELIEF [Concomitant]
     Indication: IMMUNISATION
     Dosage: UNK
     Route: 065
  6. LORATADINE. [Concomitant]
     Active Substance: LORATADINE
     Indication: MULTIPLE ALLERGIES
     Dosage: UNK
     Route: 065
     Dates: start: 20100101
  7. FLUTIFORM [Concomitant]
     Active Substance: FLUTICASONE PROPIONATE\FORMOTEROL FUMARATE
     Indication: ASTHMA
     Dosage: UNK
     Route: 065
     Dates: start: 20210201
  8. ASPIRIN. [Concomitant]
     Active Substance: ASPIRIN
     Indication: PRODUCT USED FOR UNKNOWN INDICATION
     Dosage: UNK
     Route: 065
  9. BECLOMETHASONE [Suspect]
     Active Substance: BECLOMETHASONE
     Indication: IMMUNISATION
     Dosage: UNK
     Route: 065
  10. PFIZER?BIONTECH COVID?19 VACCINE [Suspect]
     Active Substance: TOZINAMERAN
     Dosage: UNK(DOSE 2)
     Route: 065
     Dates: start: 20210505, end: 20210505

REACTIONS (17)
  - Dry mouth [Recovered/Resolved]
  - Muscle spasms [Recovering/Resolving]
  - Nausea [Unknown]
  - Pharyngeal swelling [Unknown]
  - Dizziness [Unknown]
  - Oropharyngeal discomfort [Unknown]
  - Dry throat [Unknown]
  - Dyspnoea [Recovered/Resolved]
  - Head discomfort [Unknown]
  - Tremor [Unknown]
  - Pain in extremity [Recovered/Resolved]
  - Cough [Unknown]
  - Vomiting [Unknown]
  - Fatigue [Recovering/Resolving]
  - Headache [Recovered/Resolved]
  - Throat tightness [Recovered/Resolved]
  - Swelling face [Unknown]

NARRATIVE: CASE EVENT DATE: 2021
